FAERS Safety Report 14480095 (Version 1)
Quarter: 2018Q1

REPORT INFORMATION
  Report Type: Spontaneous
  Country: US (occurrence: US)
  Receive Date: 20180201
  Receipt Date: 20180201
  Transmission Date: 20180509
  Serious: Yes (Other)
  Sender: FDA-Public Use
  Company Number: None

PATIENT
  Sex: Female
  Weight: 67.5 kg

DRUGS (3)
  1. KLONOPIN [Concomitant]
     Active Substance: CLONAZEPAM
  2. CLONODENE [Concomitant]
  3. MORPHINE SULF [Suspect]
     Active Substance: MORPHINE SULFATE
     Indication: BACK PAIN
     Route: 048
     Dates: start: 20180101, end: 20180201

REACTIONS (3)
  - Accidental overdose [None]
  - Product commingling [None]
  - Product label on wrong product [None]

NARRATIVE: CASE EVENT DATE: 20180201
